FAERS Safety Report 5512520-7 (Version None)
Quarter: 2007Q4

REPORT INFORMATION
  Report Type: 
  Country: None (occurrence: None)
  Receive Date: 20071112
  Receipt Date: 20070607
  Transmission Date: 20080405
  Serious: No
  Sender: FDA-Public Use
  Company Number: A0654601A

PATIENT
  Age: 55 Year
  Sex: Male

DRUGS (5)
  1. AVANDAMET [Suspect]
     Dosage: 8 PER DAY
     Route: 048
     Dates: start: 20070101
  2. AMLODIPINE [Concomitant]
  3. AMLODIPINE BESYLATE [Concomitant]
  4. UNSPECIFIED MEDICATION [Concomitant]
  5. BENAZAPRIL [Concomitant]

REACTIONS (2)
  - PAIN IN EXTREMITY [None]
  - SENSATION OF HEAVINESS [None]
